FAERS Safety Report 5764721-0 (Version None)
Quarter: 2008Q2

REPORT INFORMATION
  Report Type: 
  Country: None (occurrence: None)
  Receive Date: 20080611
  Receipt Date: 20080527
  Transmission Date: 20081010
  Serious: Yes (Other)
  Sender: FDA-Public Use
  Company Number: US-ELI_LILLY_AND_COMPANY-US200805000817

PATIENT
  Sex: Male
  Weight: 81.633 kg

DRUGS (6)
  1. CIALIS [Suspect]
     Dosage: 20 MG, UNK
     Dates: end: 20080401
  2. PREVACID [Concomitant]
  3. GABAPENTIN [Concomitant]
     Indication: CONVULSION
     Dosage: 100 MG, 3/D
  4. VITAMIN E [Concomitant]
  5. ZINC [Concomitant]
  6. VITAMIN B [Concomitant]

REACTIONS (1)
  - INGUINAL HERNIA [None]
